FAERS Safety Report 11518650 (Version 1)
Quarter: 2015Q3

REPORT INFORMATION
  Report Type: Spontaneous
  Country: US (occurrence: US)
  Receive Date: 20150917
  Receipt Date: 20150917
  Transmission Date: 20151125
  Serious: No
  Sender: FDA-Public Use
  Company Number: US-BAUSCH-BL-2014-002868

PATIENT
  Age: 82 Year
  Sex: Male

DRUGS (10)
  1. ERYTHROMYCIN. [Suspect]
     Active Substance: ERYTHROMYCIN
     Indication: DRY EYE
     Dosage: 1 DROP INTO RIGHT EYE, TWICE DAILY
     Route: 047
     Dates: start: 2013
  2. CLONIDINE. [Interacting]
     Active Substance: CLONIDINE
     Indication: BLOOD PRESSURE MEASUREMENT
  3. LASIX [Interacting]
     Active Substance: FUROSEMIDE
     Indication: BLOOD PRESSURE MEASUREMENT
  4. LIPITOR [Interacting]
     Active Substance: ATORVASTATIN CALCIUM
     Indication: BLOOD CHOLESTEROL
  5. LOSARTAN. [Interacting]
     Active Substance: LOSARTAN
     Indication: BLOOD PRESSURE MEASUREMENT
  6. ERYTHROMYCIN. [Interacting]
     Active Substance: ERYTHROMYCIN
     Dosage: 2 DROPS INTO LEFT EYE, TWICE DAILY
     Route: 047
     Dates: start: 2013
  7. POTASSIUM [Interacting]
     Active Substance: POTASSIUM
     Indication: BLOOD PRESSURE MEASUREMENT
  8. METFORMIN [Interacting]
     Active Substance: METFORMIN HYDROCHLORIDE
     Indication: DIABETES MELLITUS
  9. ECOTRIN [Interacting]
     Active Substance: ASPIRIN
     Indication: HEART DISEASE CONGENITAL
  10. REFRESH PLUS [Interacting]
     Active Substance: CARBOXYMETHYLCELLULOSE SODIUM
     Indication: DRY EYE
     Dosage: 2 DROPS INTO EACH EYE, TWICE DAILY
     Route: 047
     Dates: start: 2014

REACTIONS (4)
  - Eyelids pruritus [Not Recovered/Not Resolved]
  - Erythema of eyelid [Not Recovered/Not Resolved]
  - Eyelid pain [Not Recovered/Not Resolved]
  - Product use issue [Not Recovered/Not Resolved]
